FAERS Safety Report 6890953-4 (Version None)
Quarter: 2010Q3

REPORT INFORMATION
  Report Type: 
  Country: None (occurrence: None)
  Receive Date: 20100731
  Receipt Date: 20090417
  Transmission Date: 20110219
  Serious: Yes (Other)
  Sender: FDA-Public Use
  Company Number: US-PFIZER INC-2008100005

PATIENT
  Sex: Male
  Weight: 111.11 kg

DRUGS (7)
  1. LIPITOR [Suspect]
     Indication: MYOCARDIAL INFARCTION
     Dosage: 20 MG, 1X/DAY
     Route: 048
     Dates: start: 20070801, end: 20081101
  2. LIPITOR [Suspect]
     Indication: CORONARY ARTERY DISEASE
  3. LIPITOR [Suspect]
     Indication: STENT PLACEMENT
  4. LIPITOR [Suspect]
     Indication: LOW DENSITY LIPOPROTEIN INCREASED
  5. ACETYLSALICYLIC ACID [Concomitant]
  6. COREG [Concomitant]
  7. LISINOPRIL [Concomitant]

REACTIONS (3)
  - BLOOD CREATINE PHOSPHOKINASE INCREASED [None]
  - MEMORY IMPAIRMENT [None]
  - MYALGIA [None]
